FAERS Safety Report 6788837-5 (Version None)
Quarter: 2010Q2

REPORT INFORMATION
  Report Type: 
  Country: None (occurrence: None)
  Receive Date: 20100623
  Receipt Date: 20080611
  Transmission Date: 20101027
  Serious: Yes (Other)
  Sender: FDA-Public Use
  Company Number: US-PFIZER INC-2008042229

PATIENT
  Weight: 52.2 kg

DRUGS (2)
  1. GEODON [Suspect]
     Indication: BIPOLAR DISORDER
     Dates: start: 20080101
  2. XANAX [Concomitant]

REACTIONS (9)
  - DRUG INEFFECTIVE [None]
  - FLUID RETENTION [None]
  - MANIA [None]
  - MEDICATION ERROR [None]
  - POLLAKIURIA [None]
  - POLYDIPSIA [None]
  - RASH [None]
  - SOMNOLENCE [None]
  - WEIGHT INCREASED [None]
